FAERS Safety Report 22773255 (Version 5)
Quarter: 2024Q1

REPORT INFORMATION
  Report Type: Spontaneous
  Country: US (occurrence: US)
  Receive Date: 20230801
  Receipt Date: 20240115
  Transmission Date: 20240409
  Serious: Yes (Other)
  Sender: FDA-Public Use
  Company Number: US-SA-SAC20230731001036

PATIENT
  Age: 54 Year
  Sex: Male

DRUGS (6)
  1. ELOCTATE [Suspect]
     Active Substance: EFMOROCTOCOG ALFA
     Indication: Haemorrhage
     Dosage: 1543/3085 U (+/- 10%), PRN FOR MINOR/MAJOR BLEEDS
     Route: 042
  2. ELOCTATE [Suspect]
     Active Substance: EFMOROCTOCOG ALFA
     Indication: Haemorrhage
     Dosage: 1543/3085 U (+/- 10%), PRN FOR MINOR/MAJOR BLEEDS
     Route: 042
  3. ELOCTATE [Suspect]
     Active Substance: EFMOROCTOCOG ALFA
     Dosage: 1500 U FOR FINGER JOINTS IN BOTH HANDS AND BOTH THIGH MUSCLES
     Route: 042
     Dates: start: 20230719
  4. ELOCTATE [Suspect]
     Active Substance: EFMOROCTOCOG ALFA
     Dosage: 1500 U FOR FINGER JOINTS IN BOTH HANDS AND BOTH THIGH MUSCLES
     Route: 042
     Dates: start: 20230719
  5. ELOCTATE [Suspect]
     Active Substance: EFMOROCTOCOG ALFA
     Dosage: 1500 U FOR LEFT SHOULDER AND RIGHT MIDDLE FINGER.
     Route: 042
     Dates: start: 20230723
  6. ELOCTATE [Suspect]
     Active Substance: EFMOROCTOCOG ALFA
     Dosage: 1500 U FOR LEFT SHOULDER AND RIGHT MIDDLE FINGER.
     Route: 042
     Dates: start: 20230723

REACTIONS (6)
  - Haemorrhage [Recovered/Resolved]
  - Haemorrhage [Unknown]
  - Pain in extremity [Unknown]
  - Haemorrhage [Unknown]
  - Spontaneous haemorrhage [Recovered/Resolved]
  - Arthralgia [Unknown]

NARRATIVE: CASE EVENT DATE: 20230726
